FAERS Safety Report 7398799-8 (Version None)
Quarter: 2011Q2

REPORT INFORMATION
  Report Type: 
  Country: None (occurrence: None)
  Receive Date: 20110404
  Receipt Date: 20110404
  Transmission Date: 20111010
  Serious: Yes (Life-Threatening)
  Sender: FDA-Public Use
  Company Number: None

PATIENT
  Age: 79 Year
  Sex: Male
  Weight: 81.6475 kg

DRUGS (1)
  1. ULTRAM [Suspect]
     Indication: BACK PAIN
     Dosage: ONE HALF TABLET -25MG- EVERY 6 HRS AS NEE PO
     Route: 048
     Dates: start: 20110220, end: 20110220

REACTIONS (5)
  - BLOOD PRESSURE DECREASED [None]
  - HEART RATE IRREGULAR [None]
  - DIZZINESS [None]
  - VERTIGO [None]
  - PULSE ABNORMAL [None]
